FAERS Safety Report 7710259-0 (Version None)
Quarter: 2011Q3

REPORT INFORMATION
  Report Type: 
  Country: None (occurrence: None)
  Receive Date: 20110825
  Receipt Date: 20110817
  Transmission Date: 20111222
  Serious: Yes (Death, Hospitalization)
  Sender: FDA-Public Use
  Company Number: JP-JNJFOC-20110809182

PATIENT
  Age: 64 Year
  Sex: Male
  Weight: 82 kg

DRUGS (5)
  1. BETAMETHASONE [Concomitant]
     Route: 048
     Dates: start: 20110705, end: 20110710
  2. PENTASA [Concomitant]
     Route: 048
     Dates: start: 20110705, end: 20110710
  3. DECADRON [Concomitant]
     Route: 042
     Dates: start: 20110711, end: 20110813
  4. REMICADE [Suspect]
     Indication: BEHCET'S SYNDROME
     Dosage: FIRST DOSE OF INFLIXIMAB
     Route: 065
     Dates: start: 20110720
  5. COLCHICINE [Concomitant]
     Route: 048
     Dates: end: 20110813

REACTIONS (10)
  - MULTI-ORGAN FAILURE [None]
  - STAPHYLOCOCCAL BACTERAEMIA [None]
  - AXONAL NEUROPATHY [None]
  - DYSPNOEA [None]
  - BONE MARROW FAILURE [None]
  - RENAL FAILURE ACUTE [None]
  - PAIN [None]
  - HAEMORRHOIDAL HAEMORRHAGE [None]
  - GASTRIC ULCER [None]
  - MALAISE [None]
